FAERS Safety Report 10006523 (Version 8)
Quarter: 2014Q3

REPORT INFORMATION
  Report Type: Report from Study
  Country: US (occurrence: US)
  Receive Date: 20140313
  Receipt Date: 20140805
  Transmission Date: 20150326
  Serious: Yes (Death)
  Sender: FDA-Public Use
  Company Number: US-009507513-1403USA006152

PATIENT
  Age: 57 Year
  Sex: Male
  Weight: 104.76 kg

DRUGS (27)
  1. BOCEPREVIR [Suspect]
     Active Substance: BOCEPREVIR
     Dosage: 4 CAPSULES, QPM
     Route: 048
     Dates: start: 20140122, end: 20140227
  2. BOCEPREVIR [Suspect]
     Active Substance: BOCEPREVIR
     Dosage: 4 CAPSULES
     Route: 048
     Dates: start: 20140228, end: 20140228
  3. RIBAVIRIN. [Suspect]
     Active Substance: RIBAVIRIN
     Dosage: 3 DF, QPM
     Route: 048
     Dates: start: 20131221, end: 20140204
  4. RIBAVIRIN. [Suspect]
     Active Substance: RIBAVIRIN
     Dosage: 3 CAPSULES QAM
     Route: 048
     Dates: start: 20140214, end: 20140227
  5. SINGULAIR [Concomitant]
     Active Substance: MONTELUKAST SODIUM
     Indication: ASTHMA
     Dosage: TOTAL DAILY DOSE 10 MG, QD
     Route: 048
     Dates: start: 20130321, end: 20140307
  6. RIBAVIRIN. [Suspect]
     Active Substance: RIBAVIRIN
     Dosage: 3 CAPSULES QAM
     Route: 048
     Dates: start: 20131221, end: 20140213
  7. PEGASYS [Suspect]
     Active Substance: PEGINTERFERON ALFA-2A
     Dosage: 180 MICROGRAM, QW
     Route: 058
     Dates: start: 20140103, end: 20140228
  8. RIBAVIRIN. [Suspect]
     Active Substance: RIBAVIRIN
     Dosage: 3 CAPSULES QPM
     Route: 048
     Dates: start: 20140211, end: 20140227
  9. RIBAVIRIN. [Suspect]
     Active Substance: RIBAVIRIN
     Dosage: 3 CAPSULES UNKNOWN
     Route: 048
     Dates: start: 20140228, end: 20140228
  10. PEGASYS [Suspect]
     Active Substance: PEGINTERFERON ALFA-2A
     Indication: CHRONIC HEPATITIS C
     Dosage: 180 MICROGRAM, QW
     Route: 058
     Dates: start: 20131220, end: 20131220
  11. PEGASYS [Suspect]
     Active Substance: PEGINTERFERON ALFA-2A
     Dosage: 180 MICROGRAM, QW
     Route: 058
     Dates: start: 20131228, end: 20131228
  12. CARAFATE [Concomitant]
     Active Substance: SUCRALFATE
     Indication: GASTROOESOPHAGEAL REFLUX DISEASE
     Dosage: TOTAL DAILY DOSE: 4 G, QID
     Route: 048
     Dates: start: 20120503, end: 20140307
  13. BOCEPREVIR [Suspect]
     Active Substance: BOCEPREVIR
     Indication: CHRONIC HEPATITIS C
     Dosage: 4 CAPSULES
     Route: 048
     Dates: start: 20140122, end: 20140122
  14. RIBAVIRIN. [Suspect]
     Active Substance: RIBAVIRIN
     Indication: CHRONIC HEPATITIS C
     Dosage: 3 CAPSULES
     Route: 048
     Dates: start: 20131220, end: 20131220
  15. RIBAVIRIN. [Suspect]
     Active Substance: RIBAVIRIN
     Dosage: 3 CAPSULES QPM
     Route: 048
     Dates: start: 20140206, end: 20140209
  16. PROSCAR [Concomitant]
     Active Substance: FINASTERIDE
     Dosage: TOTAL DAILY DOSE 5 MG, QD
     Route: 048
     Dates: start: 20130708, end: 20140307
  17. KEFLEX [Concomitant]
     Active Substance: CEPHALEXIN
     Indication: BRONCHITIS
     Dosage: TOTAL DAILY DOSE 1500 MG, TID
     Route: 048
     Dates: start: 20131213, end: 20140307
  18. DEXILANT [Concomitant]
     Active Substance: DEXLANSOPRAZOLE
     Dosage: TOTAL DAILY DOSE 4 MG, BID
     Route: 048
     Dates: start: 20130417, end: 20140307
  19. GLIMEPIRIDE. [Concomitant]
     Active Substance: GLIMEPIRIDE
     Indication: TYPE 2 DIABETES MELLITUS
     Dosage: TOTAL DAILY DOSE 4 MG, BID
     Route: 048
     Dates: start: 20130305, end: 20140307
  20. BOCEPREVIR [Suspect]
     Active Substance: BOCEPREVIR
     Dosage: 4 CAPSULES, QAM
     Route: 048
     Dates: start: 20140123, end: 20140228
  21. BOCEPREVIR [Suspect]
     Active Substance: BOCEPREVIR
     Dosage: 4 CAPSULES,HS
     Route: 048
     Dates: start: 20140122, end: 20140227
  22. CIALIS [Concomitant]
     Active Substance: TADALAFIL
     Indication: ERECTILE DYSFUNCTION
     Dosage: TOTAL DAILY DOSE 5 MG, PRN
     Route: 048
     Dates: start: 20130820, end: 20140307
  23. SYMBICORT [Concomitant]
     Active Substance: BUDESONIDE\FORMOTEROL FUMARATE DIHYDRATE
     Indication: ASTHMA
     Dosage: TOTAL DAILY DOSE 320.9 MG, BID, FORMULATION: INHALANT
     Route: 048
     Dates: start: 20130821, end: 20140307
  24. TERAZOSIN HYDROCHLORIDE. [Concomitant]
     Active Substance: TERAZOSIN HYDROCHLORIDE
     Indication: BENIGN PROSTATIC HYPERPLASIA
     Dosage: TOTAL DAILY DOSE 5 MG, QD
     Route: 048
     Dates: start: 20130906, end: 20140307
  25. OXYCONTIN [Concomitant]
     Active Substance: OXYCODONE HYDROCHLORIDE
     Indication: BACK PAIN
     Dosage: TOTAL DAILY DOSE 40 MG, QID
     Route: 048
     Dates: start: 200001, end: 20140307
  26. INVOKANA [Concomitant]
     Active Substance: CANAGLIFLOZIN
     Indication: TYPE 2 DIABETES MELLITUS
     Dosage: TOTAL DAILY DOSE 300 MG, QD
     Route: 048
     Dates: start: 20131211, end: 20140307
  27. XANAX [Concomitant]
     Active Substance: ALPRAZOLAM
     Indication: ANXIETY
     Dosage: TOTAL DAILY DOSE 8 MG, QID
     Route: 048
     Dates: start: 20131227, end: 20140307

REACTIONS (1)
  - Death [Fatal]

NARRATIVE: CASE EVENT DATE: 20140307
